FAERS Safety Report 8954095 (Version 1)
Quarter: 2012Q4

REPORT INFORMATION
  Report Type: Report from Study
  Country: US (occurrence: US)
  Receive Date: 20121207
  Receipt Date: 20121207
  Transmission Date: 20130627
  Serious: Yes (Hospitalization)
  Sender: FDA-Public Use
  Company Number: US-SANOFI-AVENTIS-2012SA088464

PATIENT
  Age: 60 Year
  Sex: Female
  Weight: 91.4 kg

DRUGS (14)
  1. DOCETAXEL [Suspect]
     Indication: DRUG USE FOR UNKNOWN INDICATION
     Dosage: form vial
total dose 152 mg
75 mg/m2
     Route: 042
     Dates: start: 20081114, end: 20090210
  2. DOCETAXEL [Suspect]
     Indication: DRUG USE FOR UNKNOWN INDICATION
     Route: 042
     Dates: start: 20090211
  3. TRASTUZUMAB [Suspect]
     Indication: MALIGNANT BREAST NEOPLASM
     Dosage: form: vial
total dose 736 mg
     Route: 042
     Dates: start: 20081114
  4. TRASTUZUMAB [Suspect]
     Indication: MALIGNANT BREAST NEOPLASM
     Dosage: form: vial
total dose 552 mg
     Route: 042
  5. CARBOPLATIN [Suspect]
     Indication: DRUG USE FOR UNKNOWN INDICATION
     Dosage: dose 6 AUC
total dose 107 mg
form vial
     Route: 042
     Dates: start: 20081114, end: 20090210
  6. CARBOPLATIN [Suspect]
     Indication: DRUG USE FOR UNKNOWN INDICATION
     Dosage: dose level 4 AUC
form vial
     Route: 042
     Dates: start: 20090211
  7. SIMVASTATIN [Concomitant]
     Indication: DRUG USE FOR UNKNOWN INDICATION
     Dates: start: 200709
  8. DULOXETINE HYDROCHLORIDE [Concomitant]
     Indication: DRUG USE FOR UNKNOWN INDICATION
     Dates: start: 2007
  9. LEVOTHYROXINE SODIUM [Concomitant]
     Indication: DRUG USE FOR UNKNOWN INDICATION
     Dates: start: 1999
  10. RANITIDINE [Concomitant]
     Indication: DRUG USE FOR UNKNOWN INDICATION
     Dates: start: 2006
  11. ASPIRIN [Concomitant]
     Indication: DRUG USE FOR UNKNOWN INDICATION
     Dates: start: 2004
  12. PROCHLORPERAZINE [Concomitant]
     Indication: DRUG USE FOR UNKNOWN INDICATION
     Dates: start: 200811
  13. ONDANSETRON HYDROCHLORIDE [Concomitant]
     Indication: DRUG USE FOR UNKNOWN INDICATION
     Dates: start: 200811
  14. HYDROCODONE BITARTRATE/PARACETAMOL [Concomitant]
     Indication: DRUG USE FOR UNKNOWN INDICATION
     Dosage: TDD: 5/325
     Dates: start: 20090129

REACTIONS (1)
  - Hyponatraemia [Recovered/Resolved]
